FAERS Safety Report 4932018-4 (Version None)
Quarter: 2006Q1

REPORT INFORMATION
  Report Type: 
  Country: None (occurrence: None)
  Receive Date: 20060303
  Receipt Date: 20060222
  Transmission Date: 20060701
  Serious: Yes (Life-Threatening)
  Sender: FDA-Public Use
  Company Number: BE-GLAXOSMITHKLINE-B0414185A

PATIENT
  Sex: Female

DRUGS (4)
  1. AUGMENTIN '125' [Suspect]
     Indication: DRUG USE FOR UNKNOWN INDICATION
     Route: 065
     Dates: end: 20060222
  2. LIORESAL [Concomitant]
     Route: 065
  3. UNSPECIFIED MEDICATION [Concomitant]
  4. LEVOFLOXACIN [Concomitant]
     Route: 065

REACTIONS (1)
  - SWOLLEN TONGUE [None]
